FAERS Safety Report 7689771-9 (Version None)
Quarter: 2011Q3

REPORT INFORMATION
  Report Type: 
  Country: None (occurrence: None)
  Receive Date: 20110817
  Receipt Date: 20110804
  Transmission Date: 20111222
  Serious: Yes (Life-Threatening, Other)
  Sender: FDA-Public Use
  Company Number: FR-MYLANLABS-2011S1016124

PATIENT
  Age: 53 Year
  Sex: Female

DRUGS (3)
  1. METFORMIN HCL [Suspect]
     Indication: DIABETES MELLITUS
     Dates: start: 20060101, end: 20090101
  2. MEDIATOR [Suspect]
     Indication: DIABETES MELLITUS
     Dates: start: 20031101, end: 20090901
  3. DITROPAN [Suspect]
     Dates: start: 20090301, end: 20090901

REACTIONS (1)
  - AORTIC VALVE DISEASE [None]
